FAERS Safety Report 10191145 (Version 1)
Quarter: 2014Q2

REPORT INFORMATION
  Report Type: Spontaneous
  Country: IN (occurrence: IN)
  Receive Date: 20140523
  Receipt Date: 20140523
  Transmission Date: 20141212
  Serious: Yes (Other)
  Sender: FDA-Public Use
  Company Number: IN-MYLANLABS-2014S1011102

PATIENT
  Age: 26 Year
  Sex: Female
  Weight: 50 kg

DRUGS (4)
  1. FUROSEMIDE [Suspect]
     Indication: ACUTE PULMONARY OEDEMA
     Dosage: 80 MG LOADING DOSE, FOLLOWED BY 40 MG EVERY 8H
     Route: 042
  2. FUROSEMIDE [Suspect]
     Indication: ACUTE PULMONARY OEDEMA
     Dosage: 40 MG EVERY 8H
     Route: 042
  3. MORPHINE [Concomitant]
     Indication: ACUTE PULMONARY OEDEMA
     Route: 042
  4. DIGOXIN [Concomitant]
     Indication: ACUTE PULMONARY OEDEMA
     Route: 065

REACTIONS (2)
  - Oligohydramnios [Recovering/Resolving]
  - Maternal exposure during pregnancy [Recovering/Resolving]
